FAERS Safety Report 7249233-X (Version None)
Quarter: 2011Q1

REPORT INFORMATION
  Report Type: 
  Country: None (occurrence: None)
  Receive Date: 20110128
  Receipt Date: 20101207
  Transmission Date: 20110831
  Serious: Yes (Other)
  Sender: FDA-Public Use
  Company Number: US-BAYER-2010-003175

PATIENT
  Sex: Female

DRUGS (2)
  1. COUMADIN [Concomitant]
  2. AVELOX [Suspect]
     Indication: ANTIBIOTIC THERAPY
     Dosage: 400 MG, QD
     Route: 048

REACTIONS (4)
  - HAEMATOCHEZIA [None]
  - BLOOD URINE PRESENT [None]
  - INTRA-ABDOMINAL HAEMORRHAGE [None]
  - PROTHROMBIN TIME PROLONGED [None]
